FAERS Safety Report 8506094-6 (Version None)
Quarter: 2012Q3

REPORT INFORMATION
  Report Type: 
  Country: None (occurrence: None)
  Receive Date: 20120712
  Receipt Date: 20120706
  Transmission Date: 20120928
  Serious: Yes (Hospitalization)
  Sender: FDA-Public Use
  Company Number: CA-ABBOTT-12P-028-0943155-00

PATIENT
  Sex: Male
  Weight: 74.91 kg

DRUGS (1)
  1. HUMIRA [Suspect]
     Indication: CROHN'S DISEASE
     Route: 058
     Dates: start: 20120402, end: 20120501

REACTIONS (6)
  - PYREXIA [None]
  - ABSCESS [None]
  - SEPSIS [None]
  - ABDOMINAL ABSCESS [None]
  - ABDOMINAL PAIN [None]
  - FISTULA [None]
